FAERS Safety Report 9893886 (Version 2)
Quarter: 2014Q1

REPORT INFORMATION
  Report Type: Report from Study
  Country: CZ (occurrence: CZ)
  Receive Date: 20140213
  Receipt Date: 20140225
  Transmission Date: 20141002
  Serious: Yes (Hospitalization)
  Sender: FDA-Public Use
  Company Number: CZ-ABBVIE-14P-217-1200713-00

PATIENT
  Age: 18 Year
  Sex: Female
  Weight: 94 kg

DRUGS (1)
  1. HUMIRA [Suspect]
     Indication: ANKYLOSING SPONDYLITIS
     Route: 058
     Dates: start: 20131111, end: 20131111

REACTIONS (2)
  - Bone sarcoma [Not Recovered/Not Resolved]
  - Metastases to lung [Not Recovered/Not Resolved]
